FAERS Safety Report 6165308-0 (Version None)
Quarter: 2009Q2

REPORT INFORMATION
  Report Type: 
  Country: None (occurrence: None)
  Receive Date: 20090421
  Receipt Date: 20090421
  Transmission Date: 20091009
  Serious: Yes (Hospitalization)
  Sender: FDA-Public Use
  Company Number: None

PATIENT
  Sex: Female

DRUGS (1)
  1. DIGOXIN [Suspect]
     Dosage: 1 PER DAY PO
     Route: 048

REACTIONS (5)
  - DIZZINESS [None]
  - HEART RATE DECREASED [None]
  - HYPERTENSION [None]
  - MALAISE [None]
  - SYNCOPE [None]
